FAERS Safety Report 25103478 (Version 3)
Quarter: 2025Q2

REPORT INFORMATION
  Report Type: Spontaneous
  Country: JP (occurrence: JP)
  Receive Date: 20250321
  Receipt Date: 20250530
  Transmission Date: 20250716
  Serious: Yes (Death, Other)
  Sender: GLAXOSMITHKLINE
  Company Number: JP-GSK-JP2024JPN124501

PATIENT

DRUGS (8)
  1. DAPRODUSTAT [Suspect]
     Active Substance: DAPRODUSTAT
     Indication: Nephrogenic anaemia
     Dates: start: 20241001
  2. DAPRODUSTAT [Suspect]
     Active Substance: DAPRODUSTAT
  3. MIRCERA [Concomitant]
     Active Substance: METHOXY POLYETHYLENE GLYCOL-EPOETIN BETA
     Dates: end: 202409
  4. HERBALS [Concomitant]
     Active Substance: HERBALS
     Dosage: 5 G, BID
  5. MOSAPRIDE CITRATE [Concomitant]
     Active Substance: MOSAPRIDE CITRATE
  6. CALTAN [Concomitant]
     Active Substance: CALCIUM CARBONATE
     Dosage: 2 DF, BID
  7. AMLODIPINE [Concomitant]
     Active Substance: AMLODIPINE BESYLATE
     Dosage: 5 MG, 1D
  8. CALCITRIOL [Concomitant]
     Active Substance: CALCITRIOL
     Dosage: UNK, 1D

REACTIONS (6)
  - Ileus [Fatal]
  - Septic shock [Fatal]
  - Gastrointestinal ischaemia [Fatal]
  - Haemoglobin decreased [Recovered/Resolved]
  - Blood disorder [Unknown]
  - Intercepted product prescribing error [Unknown]

NARRATIVE: CASE EVENT DATE: 20250315
